FAERS Safety Report 10015890 (Version 1)
Quarter: 2014Q1

REPORT INFORMATION
  Report Type: Spontaneous
  Country: FR (occurrence: FR)
  Receive Date: 20140317
  Receipt Date: 20140317
  Transmission Date: 20141002
  Serious: Yes (Hospitalization)
  Sender: FDA-Public Use
  Company Number: FR-GLAXOSMITHKLINE-B0976618A

PATIENT
  Age: 40 Year
  Sex: Female

DRUGS (1)
  1. IMIGRANE [Suspect]
     Indication: MIGRAINE
     Route: 048

REACTIONS (4)
  - Ischaemic stroke [Not Recovered/Not Resolved]
  - Aphasia [Not Recovered/Not Resolved]
  - Hemiplegia [Not Recovered/Not Resolved]
  - Carotid artery dissection [Not Recovered/Not Resolved]
